FAERS Safety Report 21883791 (Version 1)
Quarter: 2023Q1

REPORT INFORMATION
  Report Type: Spontaneous
  Country: US (occurrence: US)
  Receive Date: 20230119
  Receipt Date: 20230119
  Transmission Date: 20230417
  Serious: Yes (Other)
  Sender: FDA-Public Use
  Company Number: US-STRIDES ARCOLAB LIMITED-2022SP011233

PATIENT
  Sex: Male

DRUGS (27)
  1. METHOTREXATE [Suspect]
     Active Substance: METHOTREXATE
     Indication: Hydroa vacciniforme
     Dosage: UNK
     Route: 065
     Dates: start: 201503
  2. METHOTREXATE [Suspect]
     Active Substance: METHOTREXATE
     Indication: Lymphoma
     Dosage: 7.5 MILLIGRAM PER WEEK
     Route: 048
     Dates: start: 201607
  3. METHOTREXATE [Suspect]
     Active Substance: METHOTREXATE
     Dosage: 20 MILLIGRAM PER WEEK
     Route: 048
     Dates: start: 201702
  4. METHOTREXATE [Suspect]
     Active Substance: METHOTREXATE
     Dosage: 7.5 MILLIGRAM PER WEEK
     Route: 048
     Dates: start: 201709, end: 2018
  5. METHOTREXATE [Suspect]
     Active Substance: METHOTREXATE
     Dosage: 15 MILLIGRAM PER WEEK
     Route: 048
  6. PREDNISOLONE [Suspect]
     Active Substance: PREDNISOLONE
     Indication: Hydroa vacciniforme
     Dosage: 40 MILLIGRAM PER DAY AS A PART OF METHOTREXATE AND PREDNISONE
     Route: 065
     Dates: end: 201702
  7. PREDNISOLONE [Suspect]
     Active Substance: PREDNISOLONE
     Indication: Lymphoma
     Dosage: UNK, AS A PART OF THALIDOMIDE AND PREDNISONE
     Route: 065
     Dates: start: 201802, end: 201804
  8. PREDNISOLONE [Suspect]
     Active Substance: PREDNISOLONE
     Dosage: 20 MILLIGRAM PER DAY
     Route: 065
     Dates: start: 2018, end: 2018
  9. PREDNISOLONE [Suspect]
     Active Substance: PREDNISOLONE
     Dosage: UNK, AS A PART OF CHOEP REGIMEN
     Route: 065
     Dates: start: 201808
  10. MYCOPHENOLATE MOFETIL [Suspect]
     Active Substance: MYCOPHENOLATE MOFETIL
     Indication: Hydroa vacciniforme
     Dosage: 500 MILLIGRAM 0.5 DAY
     Route: 065
     Dates: start: 2017, end: 2017
  11. MYCOPHENOLATE MOFETIL [Suspect]
     Active Substance: MYCOPHENOLATE MOFETIL
     Indication: Lymphoma
  12. ETOPOSIDE [Suspect]
     Active Substance: ETOPOSIDE
     Indication: Hydroa vacciniforme
     Dosage: UNK, AS A PART OF CHOEP REGIMEN
     Route: 065
     Dates: start: 201808
  13. ETOPOSIDE [Suspect]
     Active Substance: ETOPOSIDE
     Indication: Lymphoma
  14. CLINDAMYCIN [Suspect]
     Active Substance: CLINDAMYCIN
     Indication: Hydroa vacciniforme
     Dosage: UNK, TOPICAL
     Route: 061
     Dates: start: 2015, end: 201607
  15. CLINDAMYCIN [Suspect]
     Active Substance: CLINDAMYCIN
     Indication: Lymphoma
     Dosage: UNK, TOPICAL
     Dates: start: 2015, end: 201607
  16. COTRIMOXAZOLE [Suspect]
     Active Substance: SULFAMETHOXAZOLE\TRIMETHOPRIM
     Indication: Hydroa vacciniforme
     Dosage: UNK, TOPICAL
     Route: 061
     Dates: start: 2015, end: 201607
  17. COTRIMOXAZOLE [Suspect]
     Active Substance: SULFAMETHOXAZOLE\TRIMETHOPRIM
     Indication: Lymphoma
     Dosage: UNK, SYSTEMIC
     Dates: start: 2015, end: 201607
  18. CEPHALEXIN [Suspect]
     Active Substance: CEPHALEXIN
     Indication: Hydroa vacciniforme
     Dosage: UNK, TOPICAL
     Route: 061
     Dates: start: 2015, end: 201607
  19. CEPHALEXIN [Suspect]
     Active Substance: CEPHALEXIN
     Indication: Lymphoma
     Dosage: UNK, SYSTEMIC
     Dates: start: 2015, end: 201607
  20. THALIDOMIDE [Suspect]
     Active Substance: THALIDOMIDE
     Indication: Hydroa vacciniforme
     Dosage: UNK
     Route: 065
     Dates: start: 201802, end: 201804
  21. THALIDOMIDE [Suspect]
     Active Substance: THALIDOMIDE
     Indication: Lymphoma
  22. CYCLOPHOSPHAMIDE [Suspect]
     Active Substance: CYCLOPHOSPHAMIDE
     Indication: Hydroa vacciniforme
     Dosage: UNK, AS A PART OF CHOEP REGIMEN
     Route: 065
     Dates: start: 201808
  23. CYCLOPHOSPHAMIDE [Suspect]
     Active Substance: CYCLOPHOSPHAMIDE
     Indication: Lymphoma
  24. DOXORUBICIN [Suspect]
     Active Substance: DOXORUBICIN
     Indication: Hydroa vacciniforme
     Dosage: UNK, AS A PART OF CHOEP REGIMEN
     Route: 065
     Dates: start: 201808
  25. DOXORUBICIN [Suspect]
     Active Substance: DOXORUBICIN
     Indication: Lymphoma
  26. VINCRISTINE [Suspect]
     Active Substance: VINCRISTINE
     Indication: Hydroa vacciniforme
     Dosage: UNK, AS A PART OF CHOEP REGIMEN
     Route: 065
     Dates: start: 201808
  27. VINCRISTINE [Suspect]
     Active Substance: VINCRISTINE
     Indication: Lymphoma

REACTIONS (3)
  - Hepatic function abnormal [Unknown]
  - Drug ineffective [Unknown]
  - Off label use [Unknown]
